FAERS Safety Report 18538881 (Version 1)
Quarter: 2020Q4

REPORT INFORMATION
  Report Type: Spontaneous
  Country: US (occurrence: US)
  Receive Date: 20201124
  Receipt Date: 20201124
  Transmission Date: 20210114
  Serious: No
  Sender: FDA-Public Use
  Company Number: US-ELI_LILLY_AND_COMPANY-US202011007588

PATIENT
  Sex: Female

DRUGS (2)
  1. BASAGLAR [Suspect]
     Active Substance: INSULIN GLARGINE
     Indication: DIABETES MELLITUS
     Dosage: UNK UNK, UNKNOWN
     Route: 065
  2. BASAGLAR [Suspect]
     Active Substance: INSULIN GLARGINE
     Dosage: 25 U, BID
     Route: 058

REACTIONS (8)
  - Blood cholesterol increased [Unknown]
  - Diabetic retinopathy [Unknown]
  - Lymphoedema [Unknown]
  - Peripheral swelling [Unknown]
  - Depression [Unknown]
  - Blister [Unknown]
  - Ulcer [Unknown]
  - Inappropriate schedule of product administration [Unknown]
